FAERS Safety Report 5521527-5 (Version None)
Quarter: 2007Q4

REPORT INFORMATION
  Report Type: 
  Country: None (occurrence: None)
  Receive Date: 20071116
  Receipt Date: 20071116
  Transmission Date: 20080405
  Serious: Yes (Other)
  Sender: FDA-Public Use
  Company Number: None

PATIENT
  Sex: Female

DRUGS (1)
  1. DILAUDID [Suspect]
     Indication: PAIN
     Dosage: 2-4 MG IV Q3HR PRN
     Route: 042

REACTIONS (2)
  - HYPOXIA [None]
  - RESPIRATORY DISTRESS [None]
